FAERS Safety Report 8397414-4 (Version None)
Quarter: 2012Q2

REPORT INFORMATION
  Report Type: 
  Country: None (occurrence: None)
  Receive Date: 20120531
  Receipt Date: 20120522
  Transmission Date: 20120825
  Serious: Yes (Other)
  Sender: FDA-Public Use
  Company Number: IE-SP-2012-04533

PATIENT
  Sex: Female

DRUGS (3)
  1. IMMUCYST [Suspect]
     Route: 065
     Dates: start: 20120424, end: 20120424
  2. IMMUCYST [Suspect]
     Indication: BLADDER CANCER
     Route: 065
     Dates: start: 20111122, end: 20111214
  3. IMMUCYST [Suspect]
     Route: 065
     Dates: start: 20120430, end: 20120514

REACTIONS (4)
  - ABDOMINAL PAIN [None]
  - MICTURITION URGENCY [None]
  - FEELING OF BODY TEMPERATURE CHANGE [None]
  - DRUG INTOLERANCE [None]
